FAERS Safety Report 9160234 (Version 3)
Quarter: 2013Q2

REPORT INFORMATION
  Report Type: Spontaneous
  Country: US (occurrence: US)
  Receive Date: 20130313
  Receipt Date: 20130424
  Transmission Date: 20140414
  Serious: Yes (Death, Hospitalization, Other)
  Sender: FDA-Public Use
  Company Number: US-CELGENEUS-163-21880-13031178

PATIENT
  Age: 77 Year
  Sex: Male

DRUGS (89)
  1. HYDROCODONE W/ACETAMINOPHEN [Concomitant]
     Indication: PRODUCT USED FOR UNKNOWN INDICATION
     Dosage: 7.5-3.25MG
     Route: 048
     Dates: start: 20130129, end: 20130301
  2. ALLOPURINOL [Concomitant]
     Indication: PRODUCT USED FOR UNKNOWN INDICATION
     Dosage: 300 MILLIGRAM
     Route: 048
     Dates: start: 20130129, end: 20130130
  3. ALLOPURINOL [Concomitant]
     Dosage: 200 MILLIGRAM
     Route: 048
     Dates: start: 20130130, end: 20130131
  4. ALLOPURINOL [Concomitant]
     Dosage: 100 MILLIGRAM
     Route: 048
     Dates: start: 20130201, end: 20130301
  5. COLCHICINE [Concomitant]
     Indication: PRODUCT USED FOR UNKNOWN INDICATION
     Dosage: .6 MILLIGRAM
     Route: 048
     Dates: start: 20130129, end: 20130129
  6. ONDASETRON [Concomitant]
     Indication: PRODUCT USED FOR UNKNOWN INDICATION
     Dosage: 24 MILLIGRAM
     Route: 048
     Dates: start: 20130129, end: 20130301
  7. INSULIN LISPRO [Concomitant]
     Indication: PRODUCT USED FOR UNKNOWN INDICATION
     Dosage: 1 UNIT/0.01ML- 10 UNIT/0.1ML
     Route: 058
     Dates: start: 20130129, end: 20130131
  8. INSULIN LISPRO [Concomitant]
     Dosage: 1 UNIT/0.01ML- 10 UNIT/0.1ML
     Route: 058
     Dates: start: 20130131, end: 20130205
  9. INSULIN LISPRO [Concomitant]
     Dosage: 1 UNIT/0.01ML- 10 UNIT/0.1ML
     Route: 058
     Dates: start: 20130205, end: 20130301
  10. PANTOPRAZOLE SODIUM [Concomitant]
     Indication: PRODUCT USED FOR UNKNOWN INDICATION
     Dosage: 40 MILLIGRAM
     Route: 041
     Dates: start: 20130129, end: 20130129
  11. TYLENOL [Concomitant]
     Indication: PRODUCT USED FOR UNKNOWN INDICATION
     Dosage: 2600 MILLIGRAM
     Route: 048
     Dates: start: 20130129, end: 20130301
  12. ACETAMINOPHEN [Concomitant]
     Indication: PRODUCT USED FOR UNKNOWN INDICATION
     Dosage: 650MG/20.3ML
     Route: 065
     Dates: start: 20130129, end: 20130304
  13. ACETAMINOPHEN [Concomitant]
     Dosage: 2600 MILLIGRAM
     Route: 048
     Dates: start: 20130201, end: 20130201
  14. OXYCODONE / ACETAMINOPHEN [Concomitant]
     Indication: PRODUCT USED FOR UNKNOWN INDICATION
     Dosage: 1 - 2 TABS
     Route: 048
     Dates: start: 20130129, end: 20130301
  15. INFLUENZA VACCINE [Concomitant]
     Indication: PRODUCT USED FOR UNKNOWN INDICATION
     Dosage: 40MCG/0.5ML
     Route: 030
     Dates: start: 20130129, end: 20130205
  16. FAMOTIDINE [Concomitant]
     Indication: PRODUCT USED FOR UNKNOWN INDICATION
     Dosage: 20MG/2ML
     Route: 041
     Dates: start: 20130129, end: 20130206
  17. FAMOTIDINE [Concomitant]
     Dosage: 20 MILLIGRAM
     Route: 048
     Dates: start: 20130206, end: 20130301
  18. EPOETIN ALFA [Concomitant]
     Indication: PRODUCT USED FOR UNKNOWN INDICATION
     Dosage: 10,000 UNIT/ 1ML
     Route: 058
     Dates: start: 20130129, end: 20130225
  19. EPOETIN ALFA [Concomitant]
     Dosage: 20,000 UNIT/ 1ML
     Route: 058
     Dates: start: 20130202, end: 20130202
  20. EPOETIN ALFA [Concomitant]
     Dosage: 10,000 UNIT/ 1ML
     Route: 041
     Dates: start: 20130208, end: 20130208
  21. EPOETIN ALFA [Concomitant]
     Dosage: 10,000 UNIT/ 1ML
     Route: 041
     Dates: start: 20130215, end: 20130215
  22. EPOETIN ALFA [Concomitant]
     Dosage: 10,000 UNIT/ 1ML
     Route: 058
     Dates: start: 20130225, end: 20130301
  23. MAGNESIUM SULFATE [Concomitant]
     Indication: PRODUCT USED FOR UNKNOWN INDICATION
     Dosage: 2GRAMS/50ML
     Route: 041
     Dates: start: 20130130, end: 20130304
  24. K PHOS NEUTRAL [Concomitant]
     Indication: PRODUCT USED FOR UNKNOWN INDICATION
     Route: 048
     Dates: start: 20130130, end: 20130301
  25. CALCIUM GLUCONATE [Concomitant]
     Indication: PRODUCT USED FOR UNKNOWN INDICATION
     Dosage: 1,000MG/10ML
     Route: 041
     Dates: start: 20130130, end: 20130304
  26. CALCIUM GLUCONATE [Concomitant]
     Dosage: 1,000MG/10ML
     Route: 041
     Dates: start: 20130206, end: 20130206
  27. CALCIUM GLUCONATE [Concomitant]
     Dosage: 1,000MG/10ML
     Route: 041
     Dates: start: 20130213, end: 20130213
  28. LAXATIVE OF CHOICE [Concomitant]
     Indication: PRODUCT USED FOR UNKNOWN INDICATION
     Dosage: 1
     Route: 048
     Dates: start: 20130130, end: 20130131
  29. LAXATIVE OF CHOICE [Concomitant]
     Route: 048
     Dates: start: 20130131, end: 20130301
  30. WARFARIN SODIUM [Concomitant]
     Indication: PRODUCT USED FOR UNKNOWN INDICATION
     Route: 048
     Dates: start: 20130131, end: 20130131
  31. WARFARIN SODIUM [Concomitant]
     Route: 048
     Dates: start: 20130208, end: 20130209
  32. WARFARIN SODIUM [Concomitant]
     Route: 048
     Dates: start: 20130209, end: 20130210
  33. WARFARIN SODIUM [Concomitant]
     Route: 048
     Dates: start: 20130211, end: 20130213
  34. WARFARIN SODIUM [Concomitant]
     Route: 048
     Dates: start: 20130213, end: 20130213
  35. WARFARIN SODIUM [Concomitant]
     Route: 048
     Dates: start: 20130214, end: 20130217
  36. WARFARIN SODIUM [Concomitant]
     Route: 048
     Dates: start: 20130218, end: 20130219
  37. WARFARIN SODIUM [Concomitant]
     Route: 048
     Dates: start: 20130223, end: 20130223
  38. WARFARIN SODIUM [Concomitant]
     Route: 048
     Dates: start: 20130224, end: 20130224
  39. WARFARIN SODIUM [Concomitant]
     Route: 048
     Dates: start: 20130225, end: 20130226
  40. ALBUMIN, HUMAN [Concomitant]
     Indication: PRODUCT USED FOR UNKNOWN INDICATION
     Route: 065
     Dates: start: 20130131, end: 20130131
  41. DIPHENHYDRAMINE HCL [Concomitant]
     Indication: PRODUCT USED FOR UNKNOWN INDICATION
     Dosage: 25MG/0.5ML
     Route: 041
     Dates: start: 20130201, end: 20130201
  42. PHENOL [Concomitant]
     Indication: PRODUCT USED FOR UNKNOWN INDICATION
     Route: 048
     Dates: start: 20130201, end: 20130228
  43. PHENOL [Concomitant]
     Route: 048
     Dates: start: 20130228, end: 20130301
  44. MAGIC MOUTHWASH [Concomitant]
     Indication: PRODUCT USED FOR UNKNOWN INDICATION
     Dosage: 20 MILLILITER
     Dates: start: 20130201, end: 20130301
  45. SODIUM BICARBONATE [Concomitant]
     Indication: PRODUCT USED FOR UNKNOWN INDICATION
     Dosage: 1300 MILLIGRAM
     Route: 048
     Dates: start: 20130202, end: 20130207
  46. LOPERAMIDE HCL [Concomitant]
     Indication: PRODUCT USED FOR UNKNOWN INDICATION
     Route: 048
     Dates: start: 20130202, end: 20130202
  47. LOPERAMIDE HCL [Concomitant]
     Dosage: 6 MILLIGRAM
     Route: 048
     Dates: start: 20130216, end: 20130301
  48. BUPIVACAINE-EPINEPHRINE [Concomitant]
     Indication: PRODUCT USED FOR UNKNOWN INDICATION
     Route: 065
     Dates: start: 20130208, end: 20130208
  49. FENTANYL CITRATE [Concomitant]
     Indication: PRODUCT USED FOR UNKNOWN INDICATION
     Route: 065
     Dates: start: 20130208, end: 20130208
  50. MIDAZOLAM HCL [Concomitant]
     Indication: PRODUCT USED FOR UNKNOWN INDICATION
     Route: 065
     Dates: start: 20130208, end: 20130208
  51. CEFAZOLIN SODIUM [Concomitant]
     Indication: PRODUCT USED FOR UNKNOWN INDICATION
     Route: 065
     Dates: start: 20130208, end: 20130208
  52. ALTEPLASE [Concomitant]
     Indication: PRODUCT USED FOR UNKNOWN INDICATION
     Route: 065
     Dates: start: 20130211, end: 20130211
  53. ALTEPLASE [Concomitant]
     Route: 041
     Dates: start: 20130211, end: 20130304
  54. TUCKS [Concomitant]
     Indication: PRODUCT USED FOR UNKNOWN INDICATION
     Dosage: 1 APP
     Route: 054
     Dates: start: 20130211, end: 20130304
  55. GLUCAGON [Concomitant]
     Indication: PRODUCT USED FOR UNKNOWN INDICATION
     Route: 030
     Dates: start: 20130217, end: 20130304
  56. ZOLPIDEM TARTRATE [Concomitant]
     Indication: PRODUCT USED FOR UNKNOWN INDICATION
     Route: 048
     Dates: start: 20130220, end: 20130220
  57. ALPRAZOLAM [Concomitant]
     Indication: PRODUCT USED FOR UNKNOWN INDICATION
     Dosage: 2 MILLIGRAM
     Route: 048
     Dates: start: 20130222, end: 20130301
  58. HALOPERIDOL LACTATE [Concomitant]
     Indication: PRODUCT USED FOR UNKNOWN INDICATION
     Dosage: 5MG/1ML
     Route: 030
     Dates: start: 20130224, end: 20130224
  59. HALOPERIDOL LACTATE [Concomitant]
     Dosage: 2MG/0.4ML
     Route: 030
     Dates: start: 20130224, end: 20130228
  60. HALOPERIDOL LACTATE [Concomitant]
     Dosage: 1MG/0.2ML
     Route: 030
     Dates: start: 20130301, end: 20130303
  61. DIVALPROEX SODIUM [Concomitant]
     Indication: PRODUCT USED FOR UNKNOWN INDICATION
     Dosage: 375 MILLIGRAM
     Route: 048
     Dates: start: 20130224, end: 20130228
  62. DIVALPROEX SODIUM [Concomitant]
     Dosage: 500 MILLIGRAM
     Route: 048
     Dates: start: 20130228, end: 20130301
  63. VALPROATE SODIUM [Concomitant]
     Indication: PRODUCT USED FOR UNKNOWN INDICATION
     Dosage: 125MG/1.25ML
     Route: 041
     Dates: start: 20130224, end: 20130228
  64. VALPROATE SODIUM [Concomitant]
     Dosage: 125MG/1.25ML
     Route: 041
  65. CALCIUM CARBONATE [Concomitant]
     Indication: PRODUCT USED FOR UNKNOWN INDICATION
     Dosage: 1500 MILLIGRAM
     Route: 048
     Dates: start: 20130226, end: 20130301
  66. MORPHINE SULFATE [Concomitant]
     Indication: PRODUCT USED FOR UNKNOWN INDICATION
     Dosage: 2MG/1ML
     Route: 041
     Dates: start: 20130301, end: 20130303
  67. LORAZEPAM [Concomitant]
     Indication: PRODUCT USED FOR UNKNOWN INDICATION
     Dosage: 1MG/0.5ML
     Route: 041
     Dates: start: 20120303, end: 20120304
  68. LORAZEPAM [Concomitant]
     Route: 065
     Dates: start: 20120303, end: 20120303
  69. GLYCOPYRROLATE [Concomitant]
     Indication: PRODUCT USED FOR UNKNOWN INDICATION
     Dosage: 0.4MG/2ML
     Route: 041
     Dates: start: 20130303, end: 20130304
  70. REVLIMID [Suspect]
     Indication: PLASMA CELL MYELOMA
     Dosage: 10 MILLIGRAM
     Route: 048
     Dates: start: 20121129, end: 20130128
  71. VELCADE [Suspect]
     Indication: PLASMA CELL MYELOMA
     Route: 065
  72. DEXAMETHASONE [Concomitant]
     Indication: PLASMA CELL MYELOMA
     Route: 048
     Dates: start: 20130129, end: 20130131
  73. SODIUM CHLORIDE [Concomitant]
     Indication: PRODUCT USED FOR UNKNOWN INDICATION
     Route: 065
     Dates: start: 20130128, end: 20130128
  74. SODIUM CHLORIDE [Concomitant]
     Dosage: 1.8 PERCENT
     Route: 041
     Dates: start: 20130129, end: 20130131
  75. SODIUM CHLORIDE [Concomitant]
     Route: 041
     Dates: start: 20130201, end: 20130201
  76. SODIUM CHLORIDE [Concomitant]
     Route: 041
     Dates: start: 20130203, end: 20130204
  77. SODIUM CHLORIDE [Concomitant]
     Dosage: 300 MILLICURIES
     Route: 041
     Dates: start: 20130213, end: 20130213
  78. IPRATROPIUM BROMIDE [Concomitant]
     Indication: PRODUCT USED FOR UNKNOWN INDICATION
     Route: 065
     Dates: start: 20130128, end: 20130128
  79. ALBUTEROL SULFATE [Concomitant]
     Indication: PRODUCT USED FOR UNKNOWN INDICATION
     Route: 065
     Dates: start: 20130128, end: 20130128
  80. POTASSIUM CHLORIDE [Concomitant]
     Indication: PRODUCT USED FOR UNKNOWN INDICATION
     Route: 048
     Dates: start: 20130128, end: 20130128
  81. POTASSIUM CHLORIDE [Concomitant]
     Dosage: 10MEQ/100ML
     Route: 041
     Dates: start: 20130129, end: 20130129
  82. POTASSIUM CHLORIDE [Concomitant]
     Route: 041
     Dates: start: 20130130, end: 20130301
  83. POTASSIUM CHLORIDE [Concomitant]
     Route: 041
     Dates: start: 20130219, end: 20130219
  84. DEXTROSE NORMAL SALINE [Concomitant]
     Indication: PRODUCT USED FOR UNKNOWN INDICATION
     Route: 065
     Dates: start: 20130128, end: 20130128
  85. ASPIRIN [Concomitant]
     Indication: THROMBOSIS PROPHYLAXIS
     Route: 048
  86. ASPIRIN [Concomitant]
     Dosage: 325 MILLIGRAM
     Route: 048
     Dates: start: 20130129, end: 20130301
  87. CARVEDILOL [Concomitant]
     Indication: PRODUCT USED FOR UNKNOWN INDICATION
     Dosage: 25 MILLIGRAM
     Route: 048
     Dates: start: 20130129, end: 20130131
  88. CARVEDILOL [Concomitant]
     Dosage: 12.5 MILLIGRAM
     Route: 048
     Dates: start: 20130131, end: 20130301
  89. GABAPENTIN [Concomitant]
     Indication: PRODUCT USED FOR UNKNOWN INDICATION
     Dosage: 200 MILLIGRAM
     Route: 048
     Dates: start: 20130129, end: 20130301

REACTIONS (5)
  - Renal failure [Fatal]
  - Thrombocytopenia [Recovered/Resolved]
  - Staphylococcal sepsis [Recovered/Resolved with Sequelae]
  - Deep vein thrombosis [Recovered/Resolved with Sequelae]
  - Pneumonia staphylococcal [Recovered/Resolved with Sequelae]
